FAERS Safety Report 20940924 (Version 1)
Quarter: 2022Q2

REPORT INFORMATION
  Report Type: Spontaneous
  Country: US (occurrence: US)
  Receive Date: 20220609
  Receipt Date: 20220609
  Transmission Date: 20220721
  Serious: No
  Sender: FDA-Public Use
  Company Number: US-NOVARTISTESTPH-NVSC2022US132814

PATIENT
  Sex: Male

DRUGS (1)
  1. KYMRIAH [Suspect]
     Active Substance: TISAGENLECLEUCEL
     Indication: Diffuse large B-cell lymphoma
     Dosage: 1.6X10^8 CAR-POSITIVE VIABLE T CELLS
     Route: 042
     Dates: start: 202003

REACTIONS (2)
  - Dizziness [Recovered/Resolved]
  - Pyrexia [Recovered/Resolved]
